FAERS Safety Report 7643686-0 (Version None)
Quarter: 2011Q3

REPORT INFORMATION
  Report Type: 
  Country: None (occurrence: None)
  Receive Date: 20110729
  Receipt Date: 20110728
  Transmission Date: 20111222
  Serious: Yes (Hospitalization)
  Sender: FDA-Public Use
  Company Number: PHHO2009DE04326

PATIENT
  Sex: Male
  Weight: 81 kg

DRUGS (3)
  1. EXELON [Suspect]
     Indication: DEMENTIA ALZHEIMER'S TYPE
     Dosage: UNK
     Route: 062
     Dates: start: 20080628, end: 20090403
  2. BISOPROLOL FUMARATE [Suspect]
     Dosage: 50 MG, UNK
     Route: 048
     Dates: start: 19800101, end: 20090322
  3. RIVASTIGMINE [Suspect]
     Indication: DEMENTIA ALZHEIMER'S TYPE
     Dosage: 15 CM2
     Route: 062
     Dates: start: 20090304

REACTIONS (6)
  - SYNCOPE [None]
  - DECREASED APPETITE [None]
  - FALL [None]
  - BRADYCARDIA [None]
  - CONCOMITANT DISEASE PROGRESSION [None]
  - WOUND [None]
